FAERS Safety Report 12666127 (Version 1)
Quarter: 2016Q3

REPORT INFORMATION
  Report Type: Spontaneous
  Country: US (occurrence: US)
  Receive Date: 20160818
  Receipt Date: 20160818
  Transmission Date: 20161109
  Serious: No
  Sender: FDA-Public Use
  Company Number: US-JAZZ-2016-US-005598

PATIENT
  Sex: Female

DRUGS (51)
  1. HYDROCODONE/ACETAMINOPHEN [Concomitant]
     Active Substance: ACETAMINOPHEN\HYDROCODONE
  2. MILK THISTLE [Concomitant]
     Active Substance: MILK THISTLE
  3. PANCRELIPASE. [Concomitant]
     Active Substance: PANCRELIPASE
  4. BELSOMRA [Concomitant]
     Active Substance: SUVOREXANT
  5. ZINC GLUCONATE [Concomitant]
     Active Substance: ZINC GLUCONATE
  6. VIVELLE-DOT [Concomitant]
     Active Substance: ESTRADIOL
  7. ACETAMINOPHEN. [Concomitant]
     Active Substance: ACETAMINOPHEN
  8. ALPRAZOLAM. [Concomitant]
     Active Substance: ALPRAZOLAM
  9. DHEA [Concomitant]
     Active Substance: PRASTERONE
  10. XYREM [Suspect]
     Active Substance: SODIUM OXYBATE
     Indication: SLEEP DISORDER
     Dosage: 4.5 G, BID
     Route: 048
     Dates: start: 200612, end: 201110
  11. PROLENSA [Concomitant]
     Active Substance: BROMFENAC SODIUM
  12. CHOLECALCIFEROL [Concomitant]
     Active Substance: CHOLECALCIFEROL
  13. ASPIRIN. [Concomitant]
     Active Substance: ASPIRIN
  14. NORDITROPIN [Concomitant]
     Active Substance: SOMATROPIN
  15. POTASSIUM IODIDE. [Concomitant]
     Active Substance: POTASSIUM IODIDE
  16. CORTISONE ACETATE. [Concomitant]
     Active Substance: CORTISONE ACETATE
  17. OXYTOCIN. [Concomitant]
     Active Substance: OXYTOCIN
  18. VALCYTE [Concomitant]
     Active Substance: VALGANCICLOVIR HYDROCHLORIDE
  19. RESTASIS [Concomitant]
     Active Substance: CYCLOSPORINE
  20. ESTRADIOL. [Concomitant]
     Active Substance: ESTRADIOL
  21. PROGESTERONE. [Concomitant]
     Active Substance: PROGESTERONE
  22. OXYCODONE AND ACETAMINOPHEN [Concomitant]
     Active Substance: ACETAMINOPHEN\OXYCODONE HYDROCHLORIDE
  23. CITALOPRAM HYDROBROMIDE. [Concomitant]
     Active Substance: CITALOPRAM HYDROBROMIDE
  24. GABAPENTIN. [Concomitant]
     Active Substance: GABAPENTIN
  25. NUQUIN HP [Concomitant]
     Active Substance: DIOXYBENZONE\HYDROQUINONE\OXYBENZONE\PADIMATE O
  26. ZINC [Concomitant]
     Active Substance: ZINC\ZINC CHLORIDE
  27. SINGULAIR [Concomitant]
     Active Substance: MONTELUKAST SODIUM
  28. XYREM [Suspect]
     Active Substance: SODIUM OXYBATE
     Dosage: DOSE ADJUSTMENTS
     Route: 048
  29. IODINE. [Concomitant]
     Active Substance: IODINE
  30. VITAMIN B12 [Concomitant]
     Active Substance: CYANOCOBALAMIN
  31. ESTRADIOL BENZOATE [Concomitant]
     Active Substance: ESTRADIOL BENZOATE
  32. SOMA [Concomitant]
     Active Substance: CARISOPRODOL
  33. MELATONIN [Concomitant]
     Active Substance: MELATONIN
  34. POLYETHYLENE GLYCOL [Concomitant]
     Active Substance: POLYETHYLENE GLYCOLS
  35. BIOTIN [Concomitant]
     Active Substance: BIOTIN
  36. AMINOACIDS [Concomitant]
  37. TESTOSTERONE CYPIONATE. [Concomitant]
     Active Substance: TESTOSTERONE CYPIONATE
  38. XYREM [Suspect]
     Active Substance: SODIUM OXYBATE
     Dosage: 1.5 G, FIRST DOSE
     Route: 048
     Dates: start: 201602
  39. BROMFENAC SODIUM [Concomitant]
     Active Substance: BROMFENAC SODIUM
  40. OMEGA 3 [Concomitant]
     Active Substance: OMEGA-3 FATTY ACIDS
  41. TESTOSTERONE. [Concomitant]
     Active Substance: TESTOSTERONE
  42. HYDROCORTISONE. [Concomitant]
     Active Substance: HYDROCORTISONE
  43. LACTULOSE. [Concomitant]
     Active Substance: LACTULOSE
  44. PROPRANOLOL HCL [Concomitant]
     Active Substance: PROPRANOLOL HYDROCHLORIDE
  45. 5-HTP [Concomitant]
     Active Substance: OXITRIPTAN
  46. ZADITOR [Concomitant]
     Active Substance: KETOTIFEN FUMARATE
  47. XYREM [Suspect]
     Active Substance: SODIUM OXYBATE
     Dosage: 4.5 G, SECOND DOSE
     Route: 048
     Dates: start: 201602
  48. PRIMIDONE. [Concomitant]
     Active Substance: PRIMIDONE
  49. CORTEF [Concomitant]
     Active Substance: HYDROCORTISONE
  50. CELEBREX [Concomitant]
     Active Substance: CELECOXIB
  51. CELEXA [Concomitant]
     Active Substance: CITALOPRAM HYDROBROMIDE

REACTIONS (1)
  - Off label use [Unknown]
